FAERS Safety Report 9145256 (Version 1)
Quarter: 2013Q1

REPORT INFORMATION
  Report Type: Spontaneous
  Country: US (occurrence: None)
  Receive Date: 20130226
  Receipt Date: 20130226
  Transmission Date: 20140127
  Serious: Yes (Hospitalization)
  Sender: FDA-Public Use
  Company Number: None

PATIENT
  Age: 13 Year
  Sex: Male
  Weight: 50 kg

DRUGS (2)
  1. RISPERIDONE [Suspect]
     Indication: PSYCHOTIC DISORDER
     Dates: start: 20130220, end: 20130220
  2. RISPERIDONE [Suspect]
     Indication: PSYCHOTIC DISORDER
     Dates: start: 20130220, end: 20130220

REACTIONS (2)
  - Angioedema [None]
  - Anaphylactic reaction [None]
